FAERS Safety Report 18829183 (Version 1)
Quarter: 2021Q1

REPORT INFORMATION
  Report Type: Spontaneous
  Country: US (occurrence: US)
  Receive Date: 20210201
  Receipt Date: 20210201
  Transmission Date: 20210419
  Serious: No
  Sender: FDA-Public Use
  Company Number: US-ABBVIE-20K-163-3546794-00

PATIENT
  Age: 20 Year
  Sex: Female
  Weight: 50.85 kg

DRUGS (2)
  1. HUMIRA [Suspect]
     Active Substance: ADALIMUMAB
     Indication: CROHN^S DISEASE
     Route: 058
     Dates: start: 201811
  2. HUMIRA [Suspect]
     Active Substance: ADALIMUMAB
     Dosage: CITRATE FREE
     Route: 058

REACTIONS (10)
  - Gastrointestinal sounds abnormal [Recovered/Resolved]
  - Drug ineffective [Recovering/Resolving]
  - Crohn^s disease [Unknown]
  - Wrong technique in product usage process [Recovered/Resolved]
  - Dysmenorrhoea [Recovering/Resolving]
  - Inappropriate schedule of product administration [Unknown]
  - Injection site haemorrhage [Recovered/Resolved]
  - Abdominal discomfort [Recovered/Resolved]
  - Abdominal pain upper [Recovered/Resolved]
  - Device issue [Recovering/Resolving]

NARRATIVE: CASE EVENT DATE: 20200809
